FAERS Safety Report 4520069-3 (Version None)
Quarter: 2004Q4

REPORT INFORMATION
  Report Type: 
  Country: None (occurrence: None)
  Receive Date: 20041029
  Receipt Date: 20040729
  Transmission Date: 20050328
  Serious: No
  Sender: FDA-Public Use
  Company Number: 2004-119025-NL

PATIENT
  Age: 18 Year
  Sex: Female
  Weight: 49 kg

DRUGS (3)
  1. NUVARING [Suspect]
     Indication: CONTRACEPTION
     Dosage: DF DAILY, VAGINAL
     Route: 067
     Dates: start: 20020701, end: 20040722
  2. DITROPAN XL [Concomitant]
  3. TRIMETHORPRIM [Concomitant]

REACTIONS (1)
  - MIGRAINE [None]
